FAERS Safety Report 12390600 (Version 1)
Quarter: 2016Q2

REPORT INFORMATION
  Report Type: Not Available
  Country: FR (occurrence: FR)
  Receive Date: 20160520
  Receipt Date: 20160520
  Transmission Date: 20160815
  Serious: Yes (Other)
  Sender: FDA-Public Use
  Company Number: FR-WARNER CHILCOTT, LLC-1052564

PATIENT
  Age: 49 Year
  Sex: Female
  Weight: 51.14 kg

DRUGS (14)
  1. ADCIRCA [Suspect]
     Active Substance: TADALAFIL
     Route: 048
     Dates: start: 20160422, end: 20160427
  2. NEFOPAM HYDROCHLORIDE [Suspect]
     Active Substance: NEFOPAM HYDROCHLORIDE
     Dates: start: 20160418
  3. INNOHEP [Suspect]
     Active Substance: TINZAPARIN SODIUM
     Route: 058
     Dates: start: 20160318
  4. TRAMADOL. [Suspect]
     Active Substance: TRAMADOL
     Route: 048
     Dates: start: 20160419
  5. ZAMUDOL [Suspect]
     Active Substance: TRAMADOL HYDROCHLORIDE
     Route: 048
     Dates: start: 20160425
  6. COUMADINE [Suspect]
     Active Substance: WARFARIN SODIUM
     Route: 048
     Dates: start: 20160316, end: 20160319
  7. PARACETAMOL [Suspect]
     Active Substance: ACETAMINOPHEN
     Dates: start: 20160317
  8. ALPRAZOLAM MYLAN [Suspect]
     Active Substance: ALPRAZOLAM
     Route: 048
     Dates: start: 20160423
  9. ACTONEL [Suspect]
     Active Substance: RISEDRONATE SODIUM
     Route: 048
     Dates: start: 20160316, end: 20160317
  10. CORTANCYL [Suspect]
     Active Substance: PREDNISONE
     Dates: start: 20160317
  11. HYDROCORTISONE ROUSSEL [Suspect]
     Active Substance: HYDROCORTISONE
     Route: 048
     Dates: start: 20160317
  12. OROCAL D(3) [Suspect]
     Active Substance: CALCIUM CARBONATE\CHOLECALCIFEROL
     Dates: start: 20160316
  13. DIFFU-K [Suspect]
     Active Substance: POTASSIUM CHLORIDE
     Route: 048
     Dates: start: 20160317
  14. IMOVANE [Suspect]
     Active Substance: ZOPICLONE
     Route: 048
     Dates: start: 20160422

REACTIONS (3)
  - Hypotension [None]
  - Urticaria [Unknown]
  - Rash macular [Unknown]
